FAERS Safety Report 9972011 (Version 1)
Quarter: 2014Q1

REPORT INFORMATION
  Report Type: Spontaneous
  Country: JP (occurrence: None)
  Receive Date: 20140304
  Receipt Date: 20140304
  Transmission Date: 20141002
  Serious: Yes (Other)
  Sender: FDA-Public Use
  Company Number: 2014P1001629

PATIENT
  Age: 57 Year
  Sex: Male

DRUGS (1)
  1. HEPARIN [Suspect]

REACTIONS (4)
  - Heparin-induced thrombocytopenia [None]
  - Thrombosis [None]
  - Device occlusion [None]
  - Procedural complication [None]
